FAERS Safety Report 8340127-5 (Version None)
Quarter: 2012Q2

REPORT INFORMATION
  Report Type: 
  Country: None (occurrence: None)
  Receive Date: 20120507
  Receipt Date: 20120502
  Transmission Date: 20120825
  Serious: Yes (Other)
  Sender: FDA-Public Use
  Company Number: FR-GENZYME-CLOF-1002135

PATIENT
  Age: 24 Year
  Sex: Female

DRUGS (9)
  1. EVOLTRA [Suspect]
     Indication: BONE MARROW CONDITIONING REGIMEN
  2. CYTARABINE [Suspect]
     Indication: BONE MARROW CONDITIONING REGIMEN
  3. EVOLTRA [Suspect]
     Indication: ACUTE MYELOID LEUKAEMIA
     Dosage: UNK
     Route: 065
     Dates: start: 20101112, end: 20101116
  4. CYCLOPHOSPHAMIDE [Suspect]
     Indication: ACUTE MYELOID LEUKAEMIA
     Dosage: UNK
     Route: 065
     Dates: start: 20101112, end: 20101116
  5. ANTILYMPHOCYTE IMMUNOGLOBULIN [Concomitant]
     Indication: PRODUCT USED FOR UNKNOWN INDICATION
     Dosage: UNK
     Route: 065
     Dates: start: 20101112, end: 20101116
  6. CORTICOSTEROID NOS [Concomitant]
     Indication: PRODUCT USED FOR UNKNOWN INDICATION
     Dosage: UNK
     Route: 065
  7. CYTARABINE [Suspect]
     Indication: ACUTE MYELOID LEUKAEMIA
     Dosage: UNK
     Route: 065
     Dates: start: 20101112, end: 20101116
  8. CYCLOPHOSPHAMIDE [Suspect]
     Indication: BONE MARROW CONDITIONING REGIMEN
  9. NEORAL [Concomitant]
     Indication: PRODUCT USED FOR UNKNOWN INDICATION
     Dosage: UNK
     Route: 065

REACTIONS (6)
  - AGRANULOCYTOSIS [None]
  - GAIT DISTURBANCE [None]
  - PYREXIA [None]
  - MYELOPATHY [None]
  - ERYTHEMA [None]
  - PAIN IN EXTREMITY [None]
